FAERS Safety Report 6751527-9 (Version None)
Quarter: 2010Q2

REPORT INFORMATION
  Report Type: 
  Country: None (occurrence: None)
  Receive Date: 20100602
  Receipt Date: 20100522
  Transmission Date: 20101027
  Serious: Yes (Hospitalization)
  Sender: FDA-Public Use
  Company Number: LB-ROCHE-704813

PATIENT
  Age: 52 Year
  Sex: Male

DRUGS (2)
  1. AVASTIN [Suspect]
     Indication: BRAIN STEM GLIOMA
     Route: 042
     Dates: start: 20100521
  2. VINCRISTINE [Concomitant]
     Indication: BRAIN STEM GLIOMA
     Route: 042
     Dates: start: 20100521

REACTIONS (1)
  - BRADYCARDIA [None]
